FAERS Safety Report 7048140-5 (Version None)
Quarter: 2010Q4

REPORT INFORMATION
  Report Type: 
  Country: None (occurrence: None)
  Receive Date: 20101015
  Receipt Date: 20101007
  Transmission Date: 20110411
  Serious: Yes (Hospitalization, Disabling)
  Sender: FDA-Public Use
  Company Number: US-ABBOTT-10P-163-0677118-00

PATIENT
  Sex: Female
  Weight: 93.07 kg

DRUGS (4)
  1. NIASPAN [Suspect]
     Indication: DYSLIPIDAEMIA
     Dosage: AT BED TIME
     Route: 048
     Dates: end: 20090301
  2. NIASPAN [Suspect]
     Dosage: AT BED TIME
     Route: 048
     Dates: end: 20100101
  3. CRESTOR [Suspect]
     Indication: DYSLIPIDAEMIA
  4. VANCOMYCIN [Suspect]
     Indication: URINARY TRACT INFECTION
     Route: 042
     Dates: start: 20090301, end: 20090301

REACTIONS (11)
  - ANAEMIA [None]
  - BALANCE DISORDER [None]
  - BLOOD CHOLESTEROL INCREASED [None]
  - BLOOD GLUCOSE INCREASED [None]
  - CYSTITIS [None]
  - FALL [None]
  - MUSCULAR WEAKNESS [None]
  - PAIN IN EXTREMITY [None]
  - PARONYCHIA [None]
  - RENAL FAILURE [None]
  - RHABDOMYOLYSIS [None]
